FAERS Safety Report 18144882 (Version 1)
Quarter: 2020Q3

REPORT INFORMATION
  Report Type: Spontaneous
  Country: US (occurrence: US)
  Receive Date: 20200813
  Receipt Date: 20200813
  Transmission Date: 20201103
  Serious: No
  Sender: FDA-Public Use
  Company Number: None

PATIENT
  Age: 50 Year
  Sex: Female
  Weight: 58.5 kg

DRUGS (1)
  1. NEXT ADVANCED ANTIBACTERIAL HAND SANITIZER [Suspect]
     Active Substance: ALCOHOL
     Indication: COVID-19 PROPHYLAXIS
     Route: 061
     Dates: start: 20200701, end: 20200813

REACTIONS (4)
  - Chemical poisoning [None]
  - Blood methanol [None]
  - Product formulation issue [None]
  - Recalled product administered [None]

NARRATIVE: CASE EVENT DATE: 20200813
